FAERS Safety Report 9291736 (Version 2)
Quarter: 2013Q3

REPORT INFORMATION
  Report Type: Spontaneous
  Country: AU (occurrence: AU)
  Receive Date: 20130516
  Receipt Date: 20130809
  Transmission Date: 20140515
  Serious: Yes (Hospitalization, Other)
  Sender: FDA-Public Use
  Company Number: AU-ROCHE-1224658

PATIENT
  Age: 42 Year
  Sex: 0

DRUGS (3)
  1. PEGASYS [Suspect]
     Indication: HEPATITIS C
     Route: 065
  2. RIBAVIRIN [Suspect]
     Indication: HEPATITIS C
     Route: 065
  3. TELAPREVIR [Suspect]
     Indication: HEPATITIS C
     Route: 065

REACTIONS (8)
  - Suicidal ideation [Unknown]
  - Hyperthyroidism [Unknown]
  - Anal pruritus [Unknown]
  - Rectal haemorrhage [Unknown]
  - Haemorrhoids [Unknown]
  - Anal abscess [Recovered/Resolved]
  - Abscess [Recovered/Resolved]
  - Hyperthyroidism [Unknown]
